FAERS Safety Report 18284333 (Version 1)
Quarter: 2020Q3

REPORT INFORMATION
  Report Type: Spontaneous
  Country: RU (occurrence: RU)
  Receive Date: 20200918
  Receipt Date: 20200918
  Transmission Date: 20201103
  Serious: Yes (Death, Hospitalization, Other)
  Sender: FDA-Public Use
  Company Number: RU-JNJFOC-20200916965

PATIENT
  Age: 2 Day

DRUGS (1)
  1. TRACLEER [Suspect]
     Active Substance: BOSENTAN
     Indication: PULMONARY HYPERTENSION
     Route: 065

REACTIONS (3)
  - Intraventricular haemorrhage [Fatal]
  - Product use issue [Unknown]
  - Off label use [Unknown]
